FAERS Safety Report 9935303 (Version 1)
Quarter: 2014Q1

REPORT INFORMATION
  Report Type: Spontaneous
  Country: US (occurrence: US)
  Receive Date: 20140228
  Receipt Date: 20140228
  Transmission Date: 20141002
  Serious: Yes (Other)
  Sender: FDA-Public Use
  Company Number: US-ELI_LILLY_AND_COMPANY-US201402006666

PATIENT
  Sex: Male

DRUGS (6)
  1. HUMULIN NPH [Suspect]
     Indication: TYPE 2 DIABETES MELLITUS
     Dosage: 48 U, BID
     Route: 065
     Dates: start: 2006
  2. METFORMIN [Concomitant]
  3. APIDRA [Concomitant]
     Dosage: UNK, EACH EVENING
  4. LASIX                              /00032601/ [Concomitant]
  5. BABY ASPIRIN [Concomitant]
     Dosage: UNK, EACH EVENING
  6. CRESTOR [Concomitant]
     Dosage: 2.5 MG, UNKNOWN

REACTIONS (8)
  - Pancreatitis [Unknown]
  - Heart rate irregular [Unknown]
  - Radial pulse abnormal [Unknown]
  - Heart rate irregular [Unknown]
  - Radial pulse abnormal [Unknown]
  - Blood glucose increased [Unknown]
  - Drug hypersensitivity [Unknown]
  - Drug ineffective [Unknown]
